FAERS Safety Report 6684118-9 (Version None)
Quarter: 2010Q2

REPORT INFORMATION
  Report Type: 
  Country: None (occurrence: None)
  Receive Date: 20100416
  Receipt Date: 20100407
  Transmission Date: 20101027
  Serious: Yes (Other)
  Sender: FDA-Public Use
  Company Number: PHHY2010BR21840

PATIENT
  Age: 50 Year
  Sex: Female
  Weight: 57 kg

DRUGS (4)
  1. ACLASTA [Suspect]
     Indication: OSTEOPOROSIS
     Dosage: 5 MG
     Route: 042
     Dates: start: 20090101
  2. SERTRALINE HCL [Concomitant]
     Indication: DEPRESSION
     Dosage: 1 DF DAILY
     Route: 048
     Dates: start: 20080801
  3. CARBAMAZEPINE [Concomitant]
     Indication: DEPRESSION
     Dosage: 200 MG, TID
     Route: 048
     Dates: start: 20080801
  4. ESTROGENS CONJUGATED [Concomitant]
     Indication: HORMONE REPLACEMENT THERAPY
     Dosage: 1 DF, DAILY
     Route: 048
     Dates: start: 19970101

REACTIONS (4)
  - ANXIETY [None]
  - BREAST ENLARGEMENT [None]
  - MICTURITION FREQUENCY DECREASED [None]
  - SURGERY [None]
